FAERS Safety Report 20837712 (Version 2)
Quarter: 2022Q2

REPORT INFORMATION
  Report Type: Spontaneous
  Country: FR (occurrence: FR)
  Receive Date: 20220517
  Receipt Date: 20220531
  Transmission Date: 20220721
  Serious: Yes (Death, Other)
  Sender: FDA-Public Use
  Company Number: FR-BEH-2022143990

PATIENT
  Sex: Female
  Weight: 84 kg

DRUGS (6)
  1. HUMAN IMMUNOGLOBULIN G [Suspect]
     Active Substance: HUMAN IMMUNOGLOBULIN G
     Indication: Transplant rejection
     Dosage: UNK
     Route: 042
  2. BERINERT [Suspect]
     Active Substance: HUMAN C1-ESTERASE INHIBITOR
     Indication: Transplant rejection
     Dosage: 1680 INTERNATIONAL UNIT
     Route: 050
     Dates: start: 20220127, end: 20220316
  3. TACROLIMUS [Concomitant]
     Active Substance: TACROLIMUS
     Dosage: 6 MILLIGRAM
     Route: 048
     Dates: start: 20220118
  4. MYCOPHENOLATE MOFETIL [Concomitant]
     Active Substance: MYCOPHENOLATE MOFETIL
     Dosage: 1000 MILLIGRAM
     Route: 048
     Dates: start: 20220118
  5. PREDNISOLONE [Concomitant]
     Active Substance: PREDNISOLONE
     Dosage: 7180 MILLIGRAM
     Route: 042
     Dates: start: 20220122
  6. PREDNISONE [Concomitant]
     Active Substance: PREDNISONE
     Dosage: 5 (UNITS NOT PROVIDED)
     Route: 048
     Dates: start: 20220118

REACTIONS (3)
  - Septic shock [Fatal]
  - Cardiogenic shock [Fatal]
  - Off label use [Unknown]

NARRATIVE: CASE EVENT DATE: 20220101
